FAERS Safety Report 5366845-9 (Version None)
Quarter: 2007Q2

REPORT INFORMATION
  Report Type: 
  Country: None (occurrence: None)
  Receive Date: 20070619
  Receipt Date: 20070607
  Transmission Date: 20071010
  Serious: No
  Sender: FDA-Public Use
  Company Number: TPA2007A01004

PATIENT
  Age: 57 Year
  Sex: Female
  Weight: 56.6996 kg

DRUGS (11)
  1. ROZEREM [Suspect]
     Indication: INSOMNIA
     Dosage: SEE IMAGE
     Route: 048
     Dates: start: 20061101, end: 20070512
  2. ROZEREM [Suspect]
     Indication: INSOMNIA
     Dosage: SEE IMAGE
     Route: 048
     Dates: start: 20070512, end: 20070513
  3. ROZEREM [Suspect]
     Indication: INSOMNIA
     Dosage: SEE IMAGE
     Route: 048
     Dates: start: 20070513
  4. CYMBALTA [Concomitant]
  5. LIPITOR [Concomitant]
  6. FEMARA [Concomitant]
  7. MULTIVITAMIN [Concomitant]
  8. VITAMIN B (VITAMIN B) [Concomitant]
  9. VITAMIN E [Concomitant]
  10. OMEGA 3 (FISH OIL) [Concomitant]
  11. CALCIUM (CALCIUM) [Concomitant]

REACTIONS (1)
  - DRUG INEFFECTIVE [None]
